FAERS Safety Report 7791911-8 (Version None)
Quarter: 2011Q4

REPORT INFORMATION
  Report Type: 
  Country: None (occurrence: None)
  Receive Date: 20111003
  Receipt Date: 20110922
  Transmission Date: 20120403
  Serious: No
  Sender: FDA-Public Use
  Company Number: US-JNJFOC-20110909669

PATIENT
  Sex: Female

DRUGS (10)
  1. ELMIRON [Concomitant]
     Route: 065
  2. WARFARIN SODIUM [Concomitant]
     Indication: THROMBOSIS
     Dosage: 11 MG TABLET ALTERNATE 5 MG OR 6 MG ONCE DAILY ORAL
     Route: 048
  3. INVEGA SUSTENNA [Suspect]
     Indication: SCHIZOAFFECTIVE DISORDER
     Route: 030
  4. ATENOLOL [Concomitant]
     Indication: HYPERTENSION
     Route: 048
  5. SEROQUEL [Concomitant]
     Indication: SCHIZOAFFECTIVE DISORDER
     Route: 048
     Dates: start: 20100101
  6. INVEGA SUSTENNA [Suspect]
     Route: 030
     Dates: start: 20110830
  7. RISPERDAL [Suspect]
     Indication: SCHIZOPHRENIA
     Route: 048
     Dates: start: 20100101
  8. DILTIAZEM HCL [Concomitant]
     Indication: HYPERTENSION
     Route: 048
  9. FUROSEMIDE [Concomitant]
     Indication: HYPERTENSION
     Route: 048
  10. METFORMIN HCL [Concomitant]
     Indication: DIABETES MELLITUS
     Route: 048

REACTIONS (5)
  - INJECTION SITE REACTION [None]
  - PAIN IN EXTREMITY [None]
  - PRURITUS [None]
  - OEDEMA PERIPHERAL [None]
  - MOVEMENT DISORDER [None]
